FAERS Safety Report 20657112 (Version 10)
Quarter: 2025Q1

REPORT INFORMATION
  Report Type: Spontaneous
  Country: GB (occurrence: GB)
  Receive Date: 20220331
  Receipt Date: 20250114
  Transmission Date: 20250409
  Serious: Yes (Death, Other)
  Sender: ALKEM
  Company Number: None

PATIENT
  Age: 44 Year
  Sex: Female

DRUGS (13)
  1. MORPHINE SULFATE [Suspect]
     Active Substance: MORPHINE SULFATE
     Indication: Product used for unknown indication
     Route: 065
     Dates: end: 20161014
  2. MORPHINE SULFATE [Suspect]
     Active Substance: MORPHINE SULFATE
     Route: 065
  3. PREGABALIN [Suspect]
     Active Substance: PREGABALIN
     Indication: Product used for unknown indication
     Route: 065
     Dates: end: 20161015
  4. ACETAMINOPHEN [Suspect]
     Active Substance: ACETAMINOPHEN
     Indication: Pain
     Dosage: 28 DOSAGE FORM, QD
     Route: 048
     Dates: end: 20161014
  5. ACETAMINOPHEN\CODEINE PHOSPHATE [Suspect]
     Active Substance: ACETAMINOPHEN\CODEINE PHOSPHATE
     Indication: Pain
     Dosage: 28 DOSAGE FORM, QD (112 TABLET, FOR TWO WEEKS)
     Route: 048
  6. ZOPICLONE [Suspect]
     Active Substance: ZOPICLONE
     Indication: Sleep disorder
     Route: 048
  7. ZOPICLONE [Suspect]
     Active Substance: ZOPICLONE
     Route: 065
  8. ZOPICLONE [Suspect]
     Active Substance: ZOPICLONE
     Route: 065
  9. ZOPICLONE [Suspect]
     Active Substance: ZOPICLONE
     Route: 065
  10. ZOPICLONE [Suspect]
     Active Substance: ZOPICLONE
     Route: 065
  11. ZOPICLONE [Suspect]
     Active Substance: ZOPICLONE
     Route: 065
  12. COCODAMOL [Suspect]
     Active Substance: ACETAMINOPHEN\CODEINE PHOSPHATE
     Indication: Pain
     Dosage: 28 DOSAGE FORM, QD DAILY (112 TABLETS, FOR TWO WEEKS)
     Route: 048
  13. COCODAMOL [Suspect]
     Active Substance: ACETAMINOPHEN\CODEINE PHOSPHATE
     Indication: Analgesic therapy
     Route: 048

REACTIONS (11)
  - Drug diversion [Fatal]
  - Dysarthria [Fatal]
  - Eye pain [Fatal]
  - Gait disturbance [Fatal]
  - Pneumonia [Fatal]
  - Vision blurred [Fatal]
  - Toxicity to various agents [Fatal]
  - Drug abuse [Fatal]
  - Intentional product misuse [Fatal]
  - Accidental overdose [Fatal]
  - Prescription drug used without a prescription [Fatal]

NARRATIVE: CASE EVENT DATE: 20161001
